FAERS Safety Report 5518984-7 (Version None)
Quarter: 2007Q4

REPORT INFORMATION
  Report Type: 
  Country: None (occurrence: None)
  Receive Date: 20071116
  Receipt Date: 20071107
  Transmission Date: 20080405
  Serious: Yes (Other)
  Sender: FDA-Public Use
  Company Number: PHNR2007AU02078

PATIENT
  Age: 28 Year
  Sex: Male

DRUGS (3)
  1. CLOZARIL [Suspect]
     Dosage: 12.5 MG - 700 MG DAILY
     Route: 048
     Dates: start: 20030120, end: 20071108
  2. CIPROFLOXACIN [Suspect]
  3. ANTIBIOTICS [Suspect]

REACTIONS (4)
  - HERNIA REPAIR [None]
  - NEUTROPHIL COUNT DECREASED [None]
  - STAPHYLOCOCCAL INFECTION [None]
  - WHITE BLOOD CELL COUNT DECREASED [None]
